FAERS Safety Report 5925801-X (Version None)
Quarter: 2008Q4

REPORT INFORMATION
  Report Type: 
  Country: None (occurrence: None)
  Receive Date: 20081021
  Receipt Date: 20081010
  Transmission Date: 20090506
  Serious: Yes (Other)
  Sender: FDA-Public Use
  Company Number: FR-JNJFOC-20081002432

PATIENT
  Sex: Female
  Weight: 121 kg

DRUGS (15)
  1. TOPIRAMATE [Suspect]
     Dosage: 1-0-1
     Route: 048
  2. TOPIRAMATE [Suspect]
     Indication: EPILEPSY
     Route: 048
  3. TEGRETOL [Concomitant]
  4. TEGRETOL [Concomitant]
  5. SERETIDE [Concomitant]
     Route: 055
  6. AERIUS [Concomitant]
     Dosage: 0-0-1
  7. NASACORT [Concomitant]
  8. SINGULAIR [Concomitant]
     Dosage: 0-0-1
  9. BRICANYL [Concomitant]
  10. MOPRAL [Concomitant]
  11. GAVISCON [Concomitant]
  12. LUTENYL [Concomitant]
  13. BROMAZEPAM [Concomitant]
  14. AVANDAMET [Concomitant]
  15. ENALAPRIL MALEATE [Concomitant]

REACTIONS (3)
  - MANIA [None]
  - SUICIDAL IDEATION [None]
  - WEIGHT DECREASED [None]
